FAERS Safety Report 6475291-6 (Version None)
Quarter: 2009Q4

REPORT INFORMATION
  Report Type: 
  Country: None (occurrence: None)
  Receive Date: 20091204
  Receipt Date: 20090416
  Transmission Date: 20100525
  Serious: Yes (Death)
  Sender: FDA-Public Use
  Company Number: BR-ELI_LILLY_AND_COMPANY-BR200904003747

PATIENT
  Age: 65 Year
  Sex: Female

DRUGS (1)
  1. ZYPREXA [Suspect]
     Indication: AGITATION POSTOPERATIVE
     Dosage: 10 MG, UNKNOWN
     Route: 030

REACTIONS (1)
  - MYOCARDIAL INFARCTION [None]
